FAERS Safety Report 24332612 (Version 1)
Quarter: 2024Q3

REPORT INFORMATION
  Report Type: Spontaneous
  Country: US (occurrence: US)
  Receive Date: 20240918
  Receipt Date: 20240918
  Transmission Date: 20241017
  Serious: Yes (Other)
  Sender: BAYER
  Company Number: US-BAYER-2024A131032

PATIENT
  Age: 42 Year
  Sex: Male

DRUGS (2)
  1. JIVI [Suspect]
     Active Substance: DAMOCTOCOG ALFA PEGOL
     Indication: Factor VIII deficiency
     Dosage: JIVI 2000IU: INFUSE~ 4150 UNITS PRN
     Route: 042
     Dates: start: 202408
  2. HEMLIBRA [Concomitant]
     Active Substance: EMICIZUMAB-KXWH
     Indication: Prophylaxis

REACTIONS (4)
  - Muscle haemorrhage [None]
  - Haemarthrosis [None]
  - Haemarthrosis [None]
  - Pain in extremity [None]

NARRATIVE: CASE EVENT DATE: 20240825
